FAERS Safety Report 7976114-6 (Version None)
Quarter: 2011Q4

REPORT INFORMATION
  Report Type: 
  Country: None (occurrence: None)
  Receive Date: 20111213
  Receipt Date: 20111011
  Transmission Date: 20120403
  Serious: Yes (Hospitalization)
  Sender: FDA-Public Use
  Company Number: US-AMGEN-USASP2011052550

PATIENT
  Age: 53 Year
  Sex: Female

DRUGS (2)
  1. ENBREL [Suspect]
     Indication: PSORIATIC ARTHROPATHY
     Dosage: 50 MG, QWK
     Dates: start: 20050101, end: 20110601
  2. ENBREL [Suspect]
     Indication: PSORIASIS

REACTIONS (4)
  - PNEUMONIA [None]
  - DIZZINESS [None]
  - PSORIASIS [None]
  - PSORIATIC ARTHROPATHY [None]
